FAERS Safety Report 9612967 (Version 1)
Quarter: 2013Q4

REPORT INFORMATION
  Report Type: Spontaneous
  Country: DE (occurrence: MX)
  Receive Date: 20131010
  Receipt Date: 20131010
  Transmission Date: 20140711
  Serious: Yes (Death, Hospitalization)
  Sender: FDA-Public Use
  Company Number: DE-ACTELION-A-NJ2013-89655

PATIENT
  Age: 12 Year
  Sex: Male

DRUGS (1)
  1. VENTAVIS BAYER SCHERING [Suspect]
     Indication: PULMONARY HYPERTENSION
     Dosage: 2.5 MG, UNK
     Route: 055
     Dates: start: 20130809, end: 20131003

REACTIONS (3)
  - Pneumonia [Fatal]
  - Hospitalisation [Unknown]
  - Off label use [Unknown]
